FAERS Safety Report 20584291 (Version 3)
Quarter: 2022Q2

REPORT INFORMATION
  Report Type: Other
  Country: JP (occurrence: JP)
  Receive Date: 20220311
  Receipt Date: 20220428
  Transmission Date: 20220721
  Serious: No
  Sender: FDA-Public Use
  Company Number: JP-DSPHARMA-2022DSP003006

PATIENT
  Age: 58 Year
  Sex: Female

DRUGS (1)
  1. LATUDA [Suspect]
     Active Substance: LURASIDONE HYDROCHLORIDE
     Indication: Psychomotor hyperactivity
     Dosage: UNK
     Route: 048

REACTIONS (2)
  - Genital haemorrhage [Unknown]
  - Blood oestrogen increased [Unknown]
